FAERS Safety Report 8622054-9 (Version None)
Quarter: 2012Q3

REPORT INFORMATION
  Report Type: 
  Country: None (occurrence: None)
  Receive Date: 20120823
  Receipt Date: 20120823
  Transmission Date: 20120928
  Serious: Yes (Other)
  Sender: FDA-Public Use
  Company Number: None

PATIENT
  Age: 30 Year
  Sex: Female
  Weight: 84.369 kg

DRUGS (1)
  1. AMPHETAMINE AND DEXTROAMPHETAMINE SALTS [Suspect]
     Indication: ATTENTION DEFICIT/HYPERACTIVITY DISORDER
     Dosage: TAKE 1 DAILY OTHER
     Route: 050
     Dates: start: 20120502, end: 20120802

REACTIONS (7)
  - MALAISE [None]
  - RASH [None]
  - MENTAL DISORDER [None]
  - PRODUCT SUBSTITUTION ISSUE [None]
  - AFFECTIVE DISORDER [None]
  - ABDOMINAL PAIN UPPER [None]
  - HEADACHE [None]
